FAERS Safety Report 25285771 (Version 1)
Quarter: 2025Q2

REPORT INFORMATION
  Report Type: Spontaneous
  Country: US (occurrence: US)
  Receive Date: 20250509
  Receipt Date: 20250509
  Transmission Date: 20250717
  Serious: Yes (Hospitalization, Other)
  Sender: BRISTOL-MYERS SQUIBB COMPANY
  Company Number: US-BRISTOL-MYERS SQUIBB COMPANY-2025-062697

PATIENT
  Age: 73 Year
  Sex: Female

DRUGS (1)
  1. IDHIFA [Suspect]
     Active Substance: ENASIDENIB MESYLATE
     Indication: Cholangiocarcinoma
     Dosage: FREQUENCY: 1 TABLET ONCE DAILY.
     Route: 048
     Dates: start: 20250323

REACTIONS (4)
  - Asthenia [Unknown]
  - Biliary tract disorder [Unknown]
  - Haemoglobin decreased [Recovering/Resolving]
  - Off label use [Unknown]
